FAERS Safety Report 9753717 (Version 1)
Quarter: 2013Q4

REPORT INFORMATION
  Report Type: Spontaneous
  Country: US (occurrence: US)
  Receive Date: 20131213
  Receipt Date: 20131213
  Transmission Date: 20140711
  Serious: No
  Sender: FDA-Public Use
  Company Number: US-GILEAD-2010-0026670

PATIENT
  Sex: Female
  Weight: 111.58 kg

DRUGS (16)
  1. LETAIRIS [Suspect]
     Indication: PULMONARY ARTERIAL HYPERTENSION
     Route: 048
     Dates: start: 20080308
  2. LASIX [Concomitant]
  3. DYAZIDE [Concomitant]
  4. NORVAS [Concomitant]
  5. ZOCOR [Concomitant]
  6. CARDI-OMEGA 3 [Concomitant]
  7. LORTAB [Concomitant]
  8. OSCAL [Concomitant]
  9. PRILOSEC [Concomitant]
  10. EXCEDRIN EX [Concomitant]
  11. PROBIOTIC COMPLEX [Concomitant]
  12. FLUOXETINE [Concomitant]
  13. DAILY VITE [Concomitant]
  14. IRON DEXTRAN [Concomitant]
  15. POTASSIUM CHLORIDE [Concomitant]
  16. VITAMIN C [Concomitant]

REACTIONS (1)
  - Red blood cell count decreased [Unknown]
